FAERS Safety Report 13398072 (Version 3)
Quarter: 2017Q2

REPORT INFORMATION
  Report Type: Spontaneous
  Country: FR (occurrence: FR)
  Receive Date: 20170403
  Receipt Date: 20170505
  Transmission Date: 20170830
  Serious: Yes (Other)
  Sender: FDA-Public Use
  Company Number: FR-PFIZER INC-2016277583

PATIENT
  Age: 62 Year
  Sex: Female

DRUGS (7)
  1. AROMASINE [Suspect]
     Active Substance: EXEMESTANE
     Dosage: 25 MG, 1X/DAY IN THE EVENING
     Route: 048
     Dates: start: 20161115, end: 20170315
  2. AROMASINE [Suspect]
     Active Substance: EXEMESTANE
     Indication: BREAST CANCER
     Dosage: 25 MG, 1X/DAY IN THE EVENING
     Route: 048
     Dates: start: 201606
  3. XANAX [Concomitant]
     Active Substance: ALPRAZOLAM
     Dosage: 0.50 MG, 1X/DAY IN THE EVENING
     Dates: start: 2000
  4. VEINAMITOL [Concomitant]
     Active Substance: TROXERUTIN
     Dosage: UNK
  5. KETUM [Concomitant]
     Active Substance: KETOPROFEN
     Dosage: UNK
     Dates: start: 1998
  6. DAFALGAN CODEINE [Concomitant]
     Active Substance: ACETAMINOPHEN\CODEINE PHOSPHATE
     Dosage: AT TIMES
     Dates: start: 2000
  7. DAFALGAN [Concomitant]
     Active Substance: ACETAMINOPHEN
     Dosage: AT TIMES
     Dates: start: 2000

REACTIONS (25)
  - Hepatic enzyme increased [Unknown]
  - Hot flush [Unknown]
  - Affective disorder [Recovering/Resolving]
  - Osteoporosis [Unknown]
  - Vomiting [Unknown]
  - Alopecia [Unknown]
  - Blood oestrogen increased [Unknown]
  - Hepatic pain [Unknown]
  - Arthralgia [Unknown]
  - Insomnia [Unknown]
  - Nervousness [Unknown]
  - Abdominal pain upper [Unknown]
  - Arthritis [Unknown]
  - Pain [Unknown]
  - Fatigue [Unknown]
  - Liver injury [Unknown]
  - Bone pain [Unknown]
  - Pruritus [Unknown]
  - Suicidal ideation [Unknown]
  - Abdominal pain [Unknown]
  - Muscular weakness [Unknown]
  - Suicide attempt [Unknown]
  - Fracture [Unknown]
  - Osteoarthritis [Unknown]
  - Depression [Unknown]

NARRATIVE: CASE EVENT DATE: 20170108
